FAERS Safety Report 23063816 (Version 2)
Quarter: 2023Q4

REPORT INFORMATION
  Report Type: Spontaneous
  Country: US (occurrence: US)
  Receive Date: 20231013
  Receipt Date: 20231019
  Transmission Date: 20240110
  Serious: Yes (Other)
  Sender: FDA-Public Use
  Company Number: US-Blueprint Medicines Corporation-SP-US-2023-001604

PATIENT
  Sex: Female

DRUGS (2)
  1. AYVAKIT [Suspect]
     Active Substance: AVAPRITINIB
     Indication: Systemic mastocytosis
     Route: 065
  2. AYVAKIT [Suspect]
     Active Substance: AVAPRITINIB
     Route: 065
     Dates: end: 20231009

REACTIONS (7)
  - Thrombocytopenia [Unknown]
  - Pyrexia [Unknown]
  - Myalgia [Unknown]
  - Flushing [Unknown]
  - Skin disorder [Unknown]
  - Condition aggravated [Unknown]
  - Urticaria [Unknown]
